FAERS Safety Report 17416706 (Version 1)
Quarter: 2020Q1

REPORT INFORMATION
  Report Type: Spontaneous
  Country: IT (occurrence: IT)
  Receive Date: 20200214
  Receipt Date: 20200214
  Transmission Date: 20200409
  Serious: Yes (Other)
  Sender: FDA-Public Use
  Company Number: IT-SA-2020SA036499

PATIENT
  Age: 42 Year
  Sex: Female

DRUGS (2)
  1. APIDRA [Suspect]
     Active Substance: INSULIN GLULISINE
     Indication: INJECTION SITE ATROPHY
  2. APIDRA [Suspect]
     Active Substance: INSULIN GLULISINE
     Indication: INJECTION SITE REACTION
     Dosage: TOTAL BASAL DAILY DOSE OF 8 IUS AND BOLUS OF 2 IUS BEFORE BREAKFAST AND DINNER AND 6 IUS BEFORE LUNC

REACTIONS (7)
  - Lipoatrophy [Unknown]
  - Infusion site induration [Unknown]
  - Skin lesion [Unknown]
  - Diabetes mellitus inadequate control [Unknown]
  - Hypoglycaemia [Unknown]
  - Diabetic ketoacidosis [Unknown]
  - Type III immune complex mediated reaction [Unknown]
